FAERS Safety Report 5680188-5 (Version None)
Quarter: 2008Q1

REPORT INFORMATION
  Report Type: 
  Country: None (occurrence: None)
  Receive Date: 20080326
  Receipt Date: 20080319
  Transmission Date: 20080703
  Serious: Yes (Other)
  Sender: FDA-Public Use
  Company Number: US-BRISTOL-MYERS SQUIBB COMPANY-14112387

PATIENT
  Age: 48 Year
  Sex: Female

DRUGS (7)
  1. CYCLOPHOSPHAMIDE [Suspect]
     Indication: BREAST CANCER
     Dates: start: 20080103
  2. PLATINOL [Suspect]
     Indication: BREAST CANCER
     Dates: start: 20080103
  3. TAXOTERE [Suspect]
     Indication: BREAST CANCER
     Dosage: 1 DOSAGE FORM= 160 MG-100 MG/M2, EVERY TWO WEEKS
     Route: 042
     Dates: start: 20071101, end: 20080120
  4. GEMZAR [Suspect]
     Indication: BREAST CANCER
  5. NAVELBINE [Suspect]
     Indication: BREAST CANCER
     Route: 042
     Dates: start: 20080103
  6. HERCEPTIN [Suspect]
     Indication: BREAST CANCER
     Dates: start: 20080103
  7. NEUPOGEN [Concomitant]

REACTIONS (4)
  - BLOOD COUNT ABNORMAL [None]
  - OEDEMA PERIPHERAL [None]
  - PAIN [None]
  - RASH [None]
